FAERS Safety Report 6248039-8 (Version None)
Quarter: 2009Q2

REPORT INFORMATION
  Report Type: 
  Country: None (occurrence: None)
  Receive Date: 20090626
  Receipt Date: 20090619
  Transmission Date: 20091009
  Serious: Yes (Hospitalization)
  Sender: FDA-Public Use
  Company Number: US-JNJCH-2009017321

PATIENT
  Age: 16 Year
  Sex: Female

DRUGS (1)
  1. DRAMAMINE [Suspect]
     Indication: DRUG USE FOR UNKNOWN INDICATION
     Dosage: TEXT:36 TABLETS ONCE
     Route: 048

REACTIONS (1)
  - OVERDOSE [None]
